FAERS Safety Report 10076031 (Version 1)
Quarter: 2014Q2

REPORT INFORMATION
  Report Type: Spontaneous
  Country: PL (occurrence: PL)
  Receive Date: 20140414
  Receipt Date: 20140414
  Transmission Date: 20141212
  Serious: Yes (Other)
  Sender: FDA-Public Use
  Company Number: PL-SA-2014SA037215

PATIENT
  Sex: Female

DRUGS (3)
  1. CLEXANE [Suspect]
     Indication: ANTIPHOSPHOLIPID ANTIBODIES
     Dosage: START : 6TH WEEK OF PREGNANCY
     Route: 058
  2. LETROX [Concomitant]
     Indication: AUTOIMMUNE THYROIDITIS
  3. ACARD [Concomitant]

REACTIONS (3)
  - Abortion spontaneous [Unknown]
  - Foetal growth restriction [Unknown]
  - Exposure during pregnancy [Unknown]
